FAERS Safety Report 17773153 (Version 2)
Quarter: 2020Q2

REPORT INFORMATION
  Report Type: Spontaneous
  Country: US (occurrence: US)
  Receive Date: 20200513
  Receipt Date: 20200612
  Transmission Date: 20200714
  Serious: No
  Sender: FDA-Public Use
  Company Number: US-JNJFOC-20200428387

PATIENT
  Sex: Female
  Weight: 59.02 kg

DRUGS (1)
  1. MENS ROGAINE EXTRA STRENGTH [Suspect]
     Active Substance: MINOXIDIL
     Indication: ALOPECIA
     Dosage: PER CAPFUL ONCE A DAY, THE DATE OF LAST ADMINISTRATION OF PRODUCT: 14-APR-2020
     Route: 065

REACTIONS (7)
  - Product use issue [Unknown]
  - Intentional product misuse [Unknown]
  - Product odour abnormal [Unknown]
  - Poor quality product administered [Unknown]
  - Overdose [Unknown]
  - Product formulation issue [Unknown]
  - Suspected counterfeit product [Unknown]
